FAERS Safety Report 7357295-4 (Version None)
Quarter: 2011Q1

REPORT INFORMATION
  Report Type: 
  Country: None (occurrence: None)
  Receive Date: 20110308
  Receipt Date: 20110222
  Transmission Date: 20110831
  Serious: Yes (Hospitalization)
  Sender: FDA-Public Use
  Company Number: 028039

PATIENT
  Sex: Female

DRUGS (3)
  1. PHENERGAN HCL [Concomitant]
  2. CIMZIA [Suspect]
     Indication: CROHN'S DISEASE
     Dosage: (400 MG 1X/MONTH SUBCUTANEOUS)
     Route: 058
     Dates: start: 20090106
  3. PAREGORIC [Concomitant]

REACTIONS (5)
  - VOMITING [None]
  - CROHN'S DISEASE [None]
  - ABDOMINAL PAIN [None]
  - NAUSEA [None]
  - CONDITION AGGRAVATED [None]
